FAERS Safety Report 24133318 (Version 1)
Quarter: 2024Q3

REPORT INFORMATION
  Report Type: Spontaneous
  Country: MX (occurrence: MX)
  Receive Date: 20240724
  Receipt Date: 20240724
  Transmission Date: 20241017
  Serious: Yes (Other)
  Sender: AMERICAN REGENT
  Company Number: MX-AMERICAN REGENT INC-2024002639

PATIENT
  Sex: Female
  Weight: 62 kg

DRUGS (1)
  1. FERINJECT [Suspect]
     Active Substance: FERRIC CARBOXYMALTOSE
     Indication: Haemoglobin decreased
     Dosage: 500 MILLIGRAM (10 ML) (500 MG 1 IN 15 D)
     Route: 042
     Dates: start: 202312, end: 20240523

REACTIONS (4)
  - Haemodialysis [Unknown]
  - Transfusion [Unknown]
  - Drug ineffective [Unknown]
  - Suspected counterfeit product [Unknown]

NARRATIVE: CASE EVENT DATE: 20240101
